FAERS Safety Report 7704243-0 (Version None)
Quarter: 2011Q3

REPORT INFORMATION
  Report Type: 
  Country: None (occurrence: None)
  Receive Date: 20110823
  Receipt Date: 20110810
  Transmission Date: 20111222
  Serious: Yes (Other)
  Sender: FDA-Public Use
  Company Number: US-JNJFOC-20110806942

PATIENT
  Sex: Female
  Weight: 53.51 kg

DRUGS (1)
  1. NICOTROL [Suspect]
     Indication: EX-TOBACCO USER
     Route: 055
     Dates: start: 20010101, end: 20010101

REACTIONS (1)
  - BREAST DISORDER [None]
